FAERS Safety Report 5343047-3 (Version None)
Quarter: 2007Q2

REPORT INFORMATION
  Report Type: 
  Country: None (occurrence: None)
  Receive Date: 20070416
  Receipt Date: 20070221
  Transmission Date: 20071010
  Serious: No
  Sender: FDA-Public Use
  Company Number: 2007SP000569

PATIENT
  Age: 67 Year
  Sex: Male
  Weight: 83.9154 kg

DRUGS (9)
  1. LUNESTA [Suspect]
     Indication: INSOMNIA
     Dosage: 3 MG;ORAL
     Route: 048
     Dates: start: 20070101
  2. ATORVASTATIN CALCIUM [Concomitant]
  3. TAMSULOSIN HCL [Concomitant]
  4. BENICAR [Concomitant]
  5. AMLODIPINE [Concomitant]
  6. HYDROCHLOROTHIAZIDE [Concomitant]
  7. NEXIUM [Concomitant]
  8. LEVOTHYROXINE SODIUM [Concomitant]
  9. SOLATOL [Concomitant]

REACTIONS (2)
  - DRUG INEFFECTIVE [None]
  - INITIAL INSOMNIA [None]
